FAERS Safety Report 4651023-9 (Version None)
Quarter: 2005Q2

REPORT INFORMATION
  Report Type: 
  Country: None (occurrence: None)
  Receive Date: 20050429
  Receipt Date: 20050419
  Transmission Date: 20051028
  Serious: Yes (Hospitalization, Other)
  Sender: FDA-Public Use
  Company Number: 2005062926

PATIENT
  Sex: Male

DRUGS (4)
  1. CELEBREX [Suspect]
     Indication: ARTHRITIS
     Dosage: 200 MG (200 MG, 1 IN 1 D), ORAL
     Route: 048
     Dates: start: 20041115
  2. BEXTRA [Suspect]
     Indication: ARTHRITIS
     Dosage: 20 MG (20 MG, 1 IN 1 D), ORAL
     Route: 048
     Dates: start: 20031001, end: 20041215
  3. ROFECOXIB [Suspect]
     Indication: ILL-DEFINED DISORDER
     Dates: start: 19991104, end: 20041115
  4. GALENIC/PARACETAMOL/CODEINE/ (CODEINE, PARACEMATOL) [Concomitant]

REACTIONS (4)
  - HAEMORRHAGE [None]
  - KNEE OPERATION [None]
  - MYOCARDIAL INFARCTION [None]
  - POST PROCEDURAL PAIN [None]
